FAERS Safety Report 12991610 (Version 1)
Quarter: 2016Q4

REPORT INFORMATION
  Report Type: Spontaneous
  Country: RO (occurrence: RO)
  Receive Date: 20161201
  Receipt Date: 20161201
  Transmission Date: 20170207
  Serious: Yes (Hospitalization, Other)
  Sender: FDA-Public Use
  Company Number: RO-ASTRAZENECA-2016SF26004

PATIENT
  Age: 74 Year
  Sex: Male
  Weight: 84 kg

DRUGS (14)
  1. ATORVASTATIN [Concomitant]
     Active Substance: ATORVASTATIN
     Route: 048
  2. INSULINA [Concomitant]
     Active Substance: INSULIN NOS
  3. BRILIQUE [Concomitant]
     Active Substance: TICAGRELOR
     Route: 048
  4. PERINDOPRIL [Concomitant]
     Active Substance: PERINDOPRIL
     Route: 048
  5. PANTOPRAZOLE [Concomitant]
     Active Substance: PANTOPRAZOLE SODIUM
     Route: 048
  6. ZOLOFT [Concomitant]
     Active Substance: SERTRALINE HYDROCHLORIDE
  7. CARVEDILOL. [Concomitant]
     Active Substance: CARVEDILOL
     Route: 048
  8. AMLODIPINA [Concomitant]
     Active Substance: AMLODIPINE BESYLATE
     Route: 048
  9. ANXIAR [Concomitant]
  10. ASPIRINA [Concomitant]
     Active Substance: ASPIRIN
     Route: 048
  11. FUROSEMIDE. [Concomitant]
     Active Substance: FUROSEMIDE
     Route: 048
  12. NITROPECTOR [Concomitant]
     Route: 048
  13. SEROQUEL [Suspect]
     Active Substance: QUETIAPINE FUMARATE
     Route: 048
  14. DIGOXIN. [Concomitant]
     Active Substance: DIGOXIN
     Dosage: 0.25 0.5 DOSAGE FORM
     Route: 048

REACTIONS (5)
  - Acute myocardial infarction [Unknown]
  - Myocardial ischaemia [Unknown]
  - Hypercholesterolaemia [Unknown]
  - Left ventricular hypertrophy [Unknown]
  - Left ventricular dysfunction [Unknown]
